FAERS Safety Report 21908620 (Version 1)
Quarter: 2023Q1

REPORT INFORMATION
  Report Type: Spontaneous
  Country: US (occurrence: None)
  Receive Date: 20230124
  Receipt Date: 20230124
  Transmission Date: 20230418
  Serious: Yes (Hospitalization)
  Sender: FDA-Public Use
  Company Number: None

PATIENT
  Age: 62 Year
  Sex: Male
  Weight: 56.70 kg

DRUGS (2)
  1. DIPHENHYDRAMINE HYDROCHLORIDE [Suspect]
     Active Substance: DIPHENHYDRAMINE HYDROCHLORIDE
     Indication: Insomnia
     Dosage: FREQUENCY : AT BEDTIME;?
     Route: 048
     Dates: start: 20220210, end: 20220228
  2. OLANZAPINE [Suspect]
     Active Substance: OLANZAPINE
     Indication: Agitation
     Dosage: FREQUENCY : AT BEDTIME;?
     Route: 048
     Dates: start: 20220210, end: 20220228

REACTIONS (5)
  - Agitation [None]
  - Confusional state [None]
  - Delirium [None]
  - Insomnia [None]
  - Eating disorder [None]

NARRATIVE: CASE EVENT DATE: 20220227
